FAERS Safety Report 10168027 (Version 2)
Quarter: 2014Q2

REPORT INFORMATION
  Report Type: Report from Study
  Country: DE (occurrence: DE)
  Receive Date: 20140512
  Receipt Date: 20140606
  Transmission Date: 20141212
  Serious: Yes (Other)
  Sender: FDA-Public Use
  Company Number: DE-ABBVIE-14P-062-1234511-00

PATIENT
  Age: 26 Year
  Sex: Female
  Weight: 60 kg

DRUGS (2)
  1. HUMIRA [Suspect]
     Indication: PSORIASIS
     Route: 058
     Dates: end: 201210
  2. HUMIRA [Suspect]
     Dates: start: 201302, end: 20130604

REACTIONS (8)
  - Skin plaque [Recovered/Resolved]
  - Skin plaque [Recovered/Resolved]
  - Lupus-like syndrome [Recovered/Resolved]
  - Erythema [Recovered/Resolved]
  - Erythema [Recovered/Resolved]
  - Psoriasis [Unknown]
  - Granuloma annulare [Recovered/Resolved]
  - Granuloma annulare [Recovered/Resolved]
